FAERS Safety Report 15043916 (Version 1)
Quarter: 2018Q2

REPORT INFORMATION
  Report Type: Spontaneous
  Country: US (occurrence: US)
  Receive Date: 20180621
  Receipt Date: 20180621
  Transmission Date: 20180711
  Serious: No
  Sender: FDA-Public Use
  Company Number: US-WELLSTAT THERAPEUTICS CORPORATION-2049776

PATIENT
  Age: 2 Month

DRUGS (1)
  1. XURIDEN [Suspect]
     Active Substance: URIDINE TRIACETATE
     Indication: OROTICACIDURIA CONGENITAL
     Route: 050
     Dates: start: 20180405

REACTIONS (2)
  - Off label use [Unknown]
  - Complication associated with device [Unknown]

NARRATIVE: CASE EVENT DATE: 20180405
